FAERS Safety Report 11815747 (Version 3)
Quarter: 2016Q3

REPORT INFORMATION
  Report Type: Report from Study
  Country: MX (occurrence: MX)
  Receive Date: 20151209
  Receipt Date: 20160802
  Transmission Date: 20161109
  Serious: Yes (Hospitalization, Other)
  Sender: FDA-Public Use
  Company Number: MX-BRISTOL-MYERS SQUIBB COMPANY-BMS-2015-083230

PATIENT
  Age: 53 Year
  Sex: Female
  Weight: 90 kg

DRUGS (1)
  1. ABATACEPT [Suspect]
     Active Substance: ABATACEPT
     Indication: RHEUMATOID ARTHRITIS
     Dosage: 750 MG, QMO
     Route: 042
     Dates: start: 20150904, end: 20160430

REACTIONS (5)
  - Ligament rupture [Recovering/Resolving]
  - Limb operation [Unknown]
  - Arthropathy [Unknown]
  - Gait disturbance [Unknown]
  - Knee operation [Unknown]

NARRATIVE: CASE EVENT DATE: 20151109
